FAERS Safety Report 9071936 (Version 1)
Quarter: 2013Q1

REPORT INFORMATION
  Report Type: Spontaneous
  Country: JP (occurrence: JP)
  Receive Date: 20130129
  Receipt Date: 20130129
  Transmission Date: 20140127
  Serious: Yes (Death)
  Sender: FDA-Public Use
  Company Number: JP-SANOFI-AVENTIS-2013SA005426

PATIENT
  Age: 39 Year
  Sex: Female

DRUGS (4)
  1. ONETAXOTERE [Suspect]
     Indication: HEAD AND NECK CANCER
     Route: 042
     Dates: start: 20120210, end: 20130109
  2. NEDAPLATIN [Concomitant]
     Indication: HEAD AND NECK CANCER
     Dates: start: 20120210, end: 20130109
  3. CISPLATIN [Concomitant]
     Dates: start: 20120702, end: 20130109
  4. THERAPEUTIC RADIOPHARMACEUTICALS [Concomitant]
     Dosage: 63 GY
     Dates: start: 20120702, end: 20130109

REACTIONS (1)
  - Death [Fatal]
